FAERS Safety Report 8844951 (Version 1)
Quarter: 2012Q4

REPORT INFORMATION
  Report Type: Spontaneous
  Country: US (occurrence: None)
  Receive Date: 20121015
  Receipt Date: 20121015
  Transmission Date: 20130627
  Serious: No
  Sender: FDA-Public Use
  Company Number: DKLU1074663

PATIENT
  Sex: Female

DRUGS (1)
  1. PANHEMATIN [Suspect]
     Indication: PRODUCT USED FOR UNKNOWN INDICATION
     Dosage: 315 mg, millilgram(s), Intravenous (not otherwise specified)
     Route: 042

REACTIONS (1)
  - Injection site swelling [None]
